FAERS Safety Report 6895746-X (Version None)
Quarter: 2010Q3

REPORT INFORMATION
  Report Type: 
  Country: None (occurrence: None)
  Receive Date: 20100728
  Receipt Date: 20100720
  Transmission Date: 20110219
  Serious: Yes (Other)
  Sender: FDA-Public Use
  Company Number: 014745

PATIENT
  Sex: Female
  Weight: 14.5 kg

DRUGS (4)
  1. XYZAL [Suspect]
     Indication: HYPERSENSITIVITY
     Dosage: (2.5MG/ML 1/2 TEASPOON ONCE A DAY FOR FIVE DAYS BETWEEN MAR-2010 AND MAY-2010 ORAL)
     Route: 048
     Dates: start: 20100101, end: 20100101
  2. AXID [Concomitant]
  3. LEUCOVORIN CALCIUM [Concomitant]
  4. MULTI-VITAMINS [Concomitant]

REACTIONS (3)
  - APNOEA [None]
  - ATAXIA [None]
  - INCONTINENCE [None]
